FAERS Safety Report 17408711 (Version 5)
Quarter: 2021Q4

REPORT INFORMATION
  Report Type: Spontaneous
  Country: US (occurrence: US)
  Receive Date: 20200212
  Receipt Date: 20211116
  Transmission Date: 20220303
  Serious: No
  Sender: FDA-Public Use
  Company Number: US-VERTEX PHARMACEUTICALS-2020-002202

PATIENT
  Sex: Female

DRUGS (4)
  1. TRIKAFTA [Suspect]
     Active Substance: ELEXACAFTOR\IVACAFTOR\TEZACAFTOR
     Indication: Cystic fibrosis
     Dosage: BID
     Route: 048
     Dates: start: 2020, end: 202009
  2. TRIKAFTA [Suspect]
     Active Substance: ELEXACAFTOR\IVACAFTOR\TEZACAFTOR
     Dosage: SWITCHED DOSES; 150MG IVACAFTOR AM;100MG ELEXACAFTOR/50MG TEZACAFTOR/75MG IVACAFTOR PM
     Route: 048
     Dates: start: 202009
  3. TRIKAFTA [Suspect]
     Active Substance: ELEXACAFTOR\IVACAFTOR\TEZACAFTOR
     Dosage: FULL DOSE
     Route: 048
  4. CAYSTON [Concomitant]
     Active Substance: AZTREONAM
     Dosage: 75MG, TID
     Route: 055

REACTIONS (13)
  - Illness [Unknown]
  - Productive cough [Unknown]
  - Swelling face [Recovering/Resolving]
  - Drug hypersensitivity [Unknown]
  - Rash [Recovered/Resolved]
  - Arthralgia [Unknown]
  - Insomnia [Unknown]
  - Swelling [Recovering/Resolving]
  - Joint swelling [Recovering/Resolving]
  - Agitation [Unknown]
  - Feeling drunk [Unknown]
  - Fatigue [Unknown]
  - Feeling abnormal [Not Recovered/Not Resolved]

NARRATIVE: CASE EVENT DATE: 20200101
